FAERS Safety Report 5239282-5 (Version None)
Quarter: 2007Q1

REPORT INFORMATION
  Report Type: 
  Country: None (occurrence: None)
  Receive Date: 20070216
  Receipt Date: 20070213
  Transmission Date: 20070707
  Serious: Yes (Other)
  Sender: FDA-Public Use
  Company Number: US-RB-005250-07

PATIENT
  Age: 49 Year
  Sex: Male

DRUGS (1)
  1. SUBUTEX [Suspect]
     Dosage: DOSAGE AND DURATION OF TREATMENT UNKNOWN
     Route: 060

REACTIONS (1)
  - PSYCHOTIC DISORDER [None]
